FAERS Safety Report 22009831 (Version 2)
Quarter: 2023Q1

REPORT INFORMATION
  Report Type: Spontaneous
  Country: US (occurrence: US)
  Receive Date: 20230220
  Receipt Date: 20230324
  Transmission Date: 20230418
  Serious: Yes (Life-Threatening, Hospitalization, Other)
  Sender: FDA-Public Use
  Company Number: US-MLMSERVICE-20230207-4077097-1

PATIENT
  Age: 10 Year
  Sex: Female
  Weight: 55.8 kg

DRUGS (4)
  1. PREDNISONE [Suspect]
     Active Substance: PREDNISONE
     Indication: Systemic lupus erythematosus
     Dosage: 60 MILLIGRAM, ONCE A DAY (DAILY)
     Route: 065
  2. SODIUM CHLORIDE [Concomitant]
     Active Substance: SODIUM CHLORIDE
     Indication: Product used for unknown indication
     Dosage: 30 MILLILITRE PER KILOGRAM
     Route: 042
  3. DESMOPRESSIN [Concomitant]
     Active Substance: DESMOPRESSIN
     Indication: Product used for unknown indication
     Dosage: UNK
     Route: 065
  4. VASOPRESSIN [Concomitant]
     Active Substance: VASOPRESSIN
     Indication: Diabetes insipidus
     Dosage: UNK
     Route: 065

REACTIONS (1)
  - Hyperglycaemic hyperosmolar nonketotic syndrome [Recovered/Resolved]
